FAERS Safety Report 8965773 (Version 1)
Quarter: 2012Q4

REPORT INFORMATION
  Report Type: Spontaneous
  Country: US (occurrence: None)
  Receive Date: 20121206
  Receipt Date: 20121206
  Transmission Date: 20130627
  Serious: Yes (Life-Threatening, Hospitalization)
  Sender: FDA-Public Use
  Company Number: 142647

PATIENT
  Age: 48 Year
  Sex: Male

DRUGS (1)
  1. CYTARABINE [Suspect]
     Indication: ACUTE MYELOID LEUKEMIA
     Dosage: 37620mg total
     Dates: start: 20120419

REACTIONS (8)
  - Sepsis [None]
  - Febrile neutropenia [None]
  - Hypotension [None]
  - Nausea [None]
  - Vomiting [None]
  - Chills [None]
  - Pulmonary oedema [None]
  - Renal failure acute [None]
